FAERS Safety Report 23703470 (Version 1)
Quarter: 2024Q2

REPORT INFORMATION
  Report Type: Spontaneous
  Country: US (occurrence: None)
  Receive Date: 20240403
  Receipt Date: 20240403
  Transmission Date: 20240716
  Serious: Yes (Other)
  Sender: FDA-Public Use
  Company Number: None

PATIENT
  Age: 81 Year
  Sex: Female
  Weight: 77.56 kg

DRUGS (14)
  1. KISQALI [Suspect]
     Active Substance: RIBOCICLIB
     Indication: Neoplasm malignant
     Dosage: 2 PILLS X 2 DAY
     Route: 048
     Dates: start: 200402
  2. KISQALI [Suspect]
     Active Substance: RIBOCICLIB
     Indication: Metastases to bone
  3. KISQALI [Suspect]
     Active Substance: RIBOCICLIB
     Indication: Metastases to breast
  4. ZOMETA [Suspect]
     Active Substance: ZOLEDRONIC ACID
     Indication: Neoplasm malignant
     Dosage: 3 MONTHS DAILY?OTHER ROUTE : INJECTION ?
     Route: 050
     Dates: start: 202403
  5. ZOMETA [Suspect]
     Active Substance: ZOLEDRONIC ACID
     Indication: Metastases to bone
  6. ZOMETA [Suspect]
     Active Substance: ZOLEDRONIC ACID
     Indication: Metastases to breast
  7. LETROZOLE [Concomitant]
     Active Substance: LETROZOLE
  8. Amolodipine [Concomitant]
  9. Hydrchorothiazide [Concomitant]
  10. LOSARTAN [Concomitant]
  11. METFORMIN [Concomitant]
  12. CALCIUM [Suspect]
     Active Substance: CALCIUM
  13. VITAMIN D3 [Concomitant]
     Active Substance: CHOLECALCIFEROL
  14. B12 [Concomitant]

REACTIONS (19)
  - Rhinalgia [None]
  - Glossodynia [None]
  - Dry skin [None]
  - Back pain [None]
  - Arthralgia [None]
  - Fatigue [None]
  - Decreased appetite [None]
  - Weight increased [None]
  - Abdominal pain [None]
  - Chills [None]
  - Dizziness [None]
  - Mood altered [None]
  - Asthenia [None]
  - Paraesthesia [None]
  - Constipation [None]
  - Peripheral swelling [None]
  - Diarrhoea [None]
  - Cough [None]
  - Abdominal pain upper [None]

NARRATIVE: CASE EVENT DATE: 20240201
